FAERS Safety Report 4353704-3 (Version None)
Quarter: 2004Q2

REPORT INFORMATION
  Report Type: 
  Country: None (occurrence: None)
  Receive Date: 20040430
  Receipt Date: 20040415
  Transmission Date: 20050107
  Serious: Yes (Hospitalization)
  Sender: FDA-Public Use
  Company Number: S04-USA-00532-02

PATIENT
  Age: 28 Year
  Sex: Female

DRUGS (14)
  1. LEXAPRO [Suspect]
     Dosage: 30  MG QD PO
     Route: 048
     Dates: end: 20031201
  2. RISPERDAL [Concomitant]
  3. CONCERTA [Concomitant]
  4. ATIVAN [Concomitant]
  5. AMBIEN [Concomitant]
  6. BUSPAR [Concomitant]
  7. WELLBUTRIN [Concomitant]
  8. METHYLPHENIDATE HCL [Concomitant]
  9. SYNTHROID [Concomitant]
  10. SEROQUEL [Concomitant]
  11. OMEPRAZOLE [Concomitant]
  12. MIRTAZAPINE [Concomitant]
  13. ABILIFY [Concomitant]
  14. TOPAMAX [Concomitant]

REACTIONS (8)
  - ALANINE AMINOTRANSFERASE INCREASED [None]
  - BLOOD POTASSIUM INCREASED [None]
  - BLOOD THYROID STIMULATING HORMONE DECREASED [None]
  - BODY TEMPERATURE INCREASED [None]
  - CONDITION AGGRAVATED [None]
  - RASH [None]
  - RENAL IMPAIRMENT [None]
  - WEIGHT INCREASED [None]
